FAERS Safety Report 11535512 (Version 2)
Quarter: 2015Q4

REPORT INFORMATION
  Report Type: Report from Study
  Country: US (occurrence: US)
  Receive Date: 20150922
  Receipt Date: 20151014
  Transmission Date: 20160304
  Serious: Yes (Death, Hospitalization)
  Sender: FDA-Public Use
  Company Number: US-BIOGENIDEC-2015BI125438

PATIENT
  Age: 30 Year
  Sex: Female

DRUGS (4)
  1. TYSABRI [Suspect]
     Active Substance: NATALIZUMAB
     Indication: MULTIPLE SCLEROSIS
     Route: 042
     Dates: start: 20150814
  2. ZOFRAN [Concomitant]
     Active Substance: ONDANSETRON HYDROCHLORIDE
     Indication: NAUSEA
  3. VITAMIN D [Concomitant]
     Active Substance: CHOLECALCIFEROL
  4. VALIUM [Concomitant]
     Active Substance: DIAZEPAM
     Indication: VOMITING

REACTIONS (3)
  - Pneumonia aspiration [Fatal]
  - Musculoskeletal stiffness [Unknown]
  - Hypoxia [Unknown]

NARRATIVE: CASE EVENT DATE: 20150823
